FAERS Safety Report 10003340 (Version 1)
Quarter: 2014Q1

REPORT INFORMATION
  Report Type: Spontaneous
  Country: CN (occurrence: CN)
  Receive Date: 20140312
  Receipt Date: 20140312
  Transmission Date: 20141002
  Serious: Yes (Hospitalization)
  Sender: FDA-Public Use
  Company Number: PHHY2014CN026562

PATIENT
  Age: 22 Year
  Sex: Female

DRUGS (6)
  1. PREDNISONE [Suspect]
     Indication: IMMUNOSUPPRESSION
     Dosage: 50-60 MG, UNK
  2. METHYLPREDNISOLONE [Suspect]
     Indication: IMMUNOSUPPRESSION
  3. HYDROXYCHLOROQUINE [Suspect]
     Indication: IMMUNOSUPPRESSION
     Dosage: 0.2 OT, BID
  4. MYCOPHENOLATE MOFETIL [Suspect]
     Indication: IMMUNOSUPPRESSION
  5. CICLOSPORIN [Suspect]
     Indication: IMMUNOSUPPRESSION
  6. DAPSONE [Suspect]
     Indication: IMMUNOSUPPRESSION

REACTIONS (4)
  - Listeriosis [Recovered/Resolved]
  - Pyrexia [Recovered/Resolved]
  - Diarrhoea [Recovered/Resolved]
  - Meningitis [Recovered/Resolved]
